FAERS Safety Report 25884588 (Version 1)
Quarter: 2025Q4

REPORT INFORMATION
  Report Type: Spontaneous
  Country: US (occurrence: US)
  Receive Date: 20251006
  Receipt Date: 20251006
  Transmission Date: 20260118
  Serious: No
  Sender: RANBAXY
  Company Number: US-SUN PHARMACEUTICAL INDUSTRIES LTD-2024R1-469026

PATIENT
  Age: 77 Year
  Sex: Female

DRUGS (1)
  1. CEQUA [Suspect]
     Active Substance: CYCLOSPORINE
     Indication: Dry eye
     Dosage: TWICE A DAY
     Route: 047

REACTIONS (8)
  - Therapy cessation [Unknown]
  - Inflammation [Unknown]
  - Hypersensitivity [Recovering/Resolving]
  - Lacrimation increased [Unknown]
  - Eyelid oedema [Unknown]
  - Swelling of eyelid [Unknown]
  - Ocular hyperaemia [Unknown]
  - Eye irritation [Unknown]

NARRATIVE: CASE EVENT DATE: 20240801
